FAERS Safety Report 21978772 (Version 1)
Quarter: 2023Q1

REPORT INFORMATION
  Report Type: Spontaneous
  Country: US (occurrence: None)
  Receive Date: 20230208
  Receipt Date: 20230208
  Transmission Date: 20230417
  Serious: No
  Sender: FDA-Public Use
  Company Number: None

PATIENT
  Sex: Female
  Weight: 107.05 kg

DRUGS (9)
  1. EVEROLIMUS [Suspect]
     Active Substance: EVEROLIMUS
     Indication: Carcinoid tumour
     Dosage: FREQUENCY : DAILY;?
     Route: 048
     Dates: start: 202209
  2. ALBUTEROL [Concomitant]
  3. CHLORTHALIDONE [Concomitant]
  4. FLONASE [Concomitant]
  5. LEVOTHYROXINE [Concomitant]
  6. LOMOTIL [Concomitant]
  7. PREDNISONE [Concomitant]
  8. SANDOSTATIN [Concomitant]
  9. XARELTO [Concomitant]

REACTIONS (2)
  - Carcinoid tumour [None]
  - Malignant neoplasm progression [None]
